FAERS Safety Report 9384061 (Version 25)
Quarter: 2020Q1

REPORT INFORMATION
  Report Type: Report from Study
  Country: CA (occurrence: CA)
  Receive Date: 20130705
  Receipt Date: 20200221
  Transmission Date: 20200409
  Serious: Yes (Hospitalization, Other)
  Sender: FDA-Public Use
  Company Number: CA-ROCHE-1183652

PATIENT
  Age: 53 Year
  Sex: Female
  Weight: 56 kg

DRUGS (24)
  1. ACTEMRA [Suspect]
     Active Substance: TOCILIZUMAB
     Route: 042
     Dates: start: 20140923
  2. ACTEMRA [Suspect]
     Active Substance: TOCILIZUMAB
     Route: 042
     Dates: start: 20161107
  3. ALLEGRA [Concomitant]
     Active Substance: FEXOFENADINE HYDROCHLORIDE
     Route: 065
     Dates: start: 20140205
  4. ACTEMRA [Suspect]
     Active Substance: TOCILIZUMAB
     Route: 042
     Dates: start: 20160512
  5. PREDNISONE. [Suspect]
     Active Substance: PREDNISONE
     Indication: PRODUCT USED FOR UNKNOWN INDICATION
     Dosage: DAILY
     Route: 065
  6. MACROBID [Suspect]
     Active Substance: NITROFURANTOIN\NITROFURANTOIN MONOHYDRATE
     Indication: URINARY TRACT INFECTION
     Route: 065
     Dates: start: 20130404, end: 20130404
  7. AERIUS (DESLORATADINE) [Concomitant]
     Active Substance: DESLORATADINE
     Route: 048
     Dates: start: 20130726
  8. VITAMIN B [Concomitant]
     Active Substance: VITAMIN B
  9. PREDNISONE. [Suspect]
     Active Substance: PREDNISONE
     Dosage: DAILY
     Route: 065
  10. CODEINE [Suspect]
     Active Substance: CODEINE
     Indication: PRODUCT USED FOR UNKNOWN INDICATION
     Route: 065
  11. CALCIUM CARBONATE. [Concomitant]
     Active Substance: CALCIUM CARBONATE
  12. ARAVA [Concomitant]
     Active Substance: LEFLUNOMIDE
     Route: 065
     Dates: start: 201401, end: 201401
  13. COLCHICINE. [Suspect]
     Active Substance: COLCHICINE
     Indication: PRODUCT USED FOR UNKNOWN INDICATION
     Route: 065
     Dates: start: 201306
  14. CELEBREX [Concomitant]
     Active Substance: CELECOXIB
  15. VITAMIN C [Concomitant]
     Active Substance: ASCORBIC ACID
  16. ACTEMRA [Suspect]
     Active Substance: TOCILIZUMAB
     Indication: STILL^S DISEASE
     Route: 042
     Dates: start: 20121205, end: 20200107
  17. ACTEMRA [Suspect]
     Active Substance: TOCILIZUMAB
     Route: 042
     Dates: start: 20161007
  18. NAPROSYN [Suspect]
     Active Substance: NAPROXEN
     Indication: PRODUCT USED FOR UNKNOWN INDICATION
     Route: 065
     Dates: start: 201305, end: 201305
  19. CYMBALTA [Concomitant]
     Active Substance: DULOXETINE HYDROCHLORIDE
     Route: 065
     Dates: start: 201402
  20. ACTEMRA [Suspect]
     Active Substance: TOCILIZUMAB
     Route: 042
     Dates: start: 20160706
  21. ACTEMRA [Suspect]
     Active Substance: TOCILIZUMAB
     Route: 042
     Dates: start: 20161208
  22. CLINDAMYCIN. [Suspect]
     Active Substance: CLINDAMYCIN
     Indication: CELLULITIS
     Route: 048
     Dates: start: 201502, end: 201502
  23. OMEGA 3 [DOCOSAHEXAENOIC ACID;EICOSAPENTAENOIC ACID] [Concomitant]
     Active Substance: DOCONEXENT\ICOSAPENT
  24. RISEDRONATE [Concomitant]
     Active Substance: RISEDRONATE SODIUM

REACTIONS (61)
  - Eye pain [Not Recovered/Not Resolved]
  - Ocular hyperaemia [Not Recovered/Not Resolved]
  - Erythema [Not Recovered/Not Resolved]
  - Pain in extremity [Not Recovered/Not Resolved]
  - Sinus congestion [Unknown]
  - Paraesthesia [Unknown]
  - Joint range of motion decreased [Unknown]
  - Appetite disorder [Unknown]
  - Pericarditis [Recovered/Resolved]
  - Eye discharge [Not Recovered/Not Resolved]
  - Toothache [Not Recovered/Not Resolved]
  - Swelling [Not Recovered/Not Resolved]
  - Pruritus [Not Recovered/Not Resolved]
  - Chest pain [Unknown]
  - Nausea [Not Recovered/Not Resolved]
  - Rash [Recovered/Resolved]
  - Scab [Not Recovered/Not Resolved]
  - Urticaria [Unknown]
  - Acarodermatitis [Unknown]
  - Lymphadenopathy [Not Recovered/Not Resolved]
  - Tendon rupture [Unknown]
  - Off label use [Unknown]
  - Drug hypersensitivity [Not Recovered/Not Resolved]
  - Upper respiratory tract infection [Unknown]
  - Arthropathy [Unknown]
  - Immunodeficiency [Unknown]
  - Axillary pain [Not Recovered/Not Resolved]
  - Drug hypersensitivity [Unknown]
  - Seasonal allergy [Unknown]
  - Musculoskeletal stiffness [Unknown]
  - Pulmonary oedema [Unknown]
  - Pleural effusion [Unknown]
  - Ocular hyperaemia [Not Recovered/Not Resolved]
  - Musculoskeletal discomfort [Not Recovered/Not Resolved]
  - Nasopharyngitis [Unknown]
  - Weight fluctuation [Unknown]
  - Chest pain [Recovered/Resolved]
  - Hypersensitivity [Unknown]
  - Eye irritation [Not Recovered/Not Resolved]
  - Urinary tract infection [Unknown]
  - Weight increased [Unknown]
  - Peau d^orange [Unknown]
  - Pyrexia [Recovered/Resolved]
  - Abdominal tenderness [Not Recovered/Not Resolved]
  - Sinusitis [Recovered/Resolved]
  - Sinusitis [Unknown]
  - Pleurisy [Unknown]
  - Urticaria [Unknown]
  - Pain [Unknown]
  - White blood cells urine positive [Not Recovered/Not Resolved]
  - Drug hypersensitivity [Not Recovered/Not Resolved]
  - Pericarditis [Unknown]
  - Cellulitis [Unknown]
  - Skin disorder [Not Recovered/Not Resolved]
  - Chills [Recovered/Resolved]
  - Abdominal discomfort [Not Recovered/Not Resolved]
  - Oral herpes [Unknown]
  - Rash [Unknown]
  - Upper respiratory tract infection [Recovered/Resolved]
  - Intentional product use issue [Unknown]
  - Body temperature increased [Unknown]

NARRATIVE: CASE EVENT DATE: 2013
